FAERS Safety Report 26068934 (Version 1)
Quarter: 2025Q4

REPORT INFORMATION
  Report Type: Spontaneous
  Country: GB (occurrence: GB)
  Receive Date: 20251120
  Receipt Date: 20251120
  Transmission Date: 20260118
  Serious: Yes (Other)
  Sender: AUROBINDO
  Company Number: GB-MHRA-TPP51351626C10718429YC1762517008051

PATIENT
  Age: 60 Year
  Sex: Female
  Weight: 71 kg

DRUGS (9)
  1. AMLODIPINE [Suspect]
     Active Substance: AMLODIPINE BESYLATE
     Indication: Ill-defined disorder
     Dosage: 10 MILLIGRAM, ONCE A DAY (ONE TABLET TO BE TAKEN ONCE A DAY IN THE ON)
     Route: 065
     Dates: start: 20250623
  2. INDAPAMIDE [Concomitant]
     Active Substance: INDAPAMIDE
     Indication: Ill-defined disorder
     Dosage: 1 DOSAGE FORM, ONCE A DAY (ONE  TABLET TO BE TAKEN ONCE A DAY IN THE MORNING)
     Route: 065
     Dates: start: 20250808, end: 20250905
  3. LERCANIDIPINE HYDROCHLORIDE [Concomitant]
     Active Substance: LERCANIDIPINE HYDROCHLORIDE
     Indication: Ill-defined disorder
     Dosage: 1 DOSAGE FORM, ONCE A DAY (ONE TABLET TO BE TAKEN ONCE A DAY)
     Route: 065
     Dates: start: 20251014
  4. HYDROCORTISONE [Concomitant]
     Active Substance: HYDROCORTISONE
     Indication: Ill-defined disorder
     Dosage: MILD POTENCY STEROID CREAM - APPLY TO THE AFECT...
     Route: 065
  5. ATORVASTATIN [Concomitant]
     Active Substance: ATORVASTATIN
     Indication: Ill-defined disorder
     Dosage: 1 DOSAGE FORM, ONCE A DAY (ONE TABLET TO BE TAKEN IN THE EVENING TO LOWER)
     Route: 065
     Dates: start: 20250623
  6. BECONASE AQ [Concomitant]
     Active Substance: BECLOMETHASONE DIPROPIONATE MONOHYDRATE
     Indication: Ill-defined disorder
     Dosage: 1 DOSAGE FORM, TWO TIMES A DAY (1 PUFF UP EACH NOSTRIL TWICE A DAY)
     Dates: start: 20250623
  7. LOSARTAN [Concomitant]
     Active Substance: LOSARTAN
     Indication: Ill-defined disorder
     Dosage: 1 DOSAGE FORM, ONCE A DAY (ONE TO BE TAKEN IN THE MORNING)
     Route: 065
     Dates: start: 20250623
  8. ALBUTEROL [Concomitant]
     Active Substance: ALBUTEROL
     Indication: Ill-defined disorder
     Dosage: 2 PUFFS AS REQUIRED
     Route: 065
     Dates: start: 20250623
  9. MINERAL OIL\PARAFFIN [Concomitant]
     Active Substance: MINERAL OIL\PARAFFIN
     Indication: Ill-defined disorder
     Dosage: TO BE APPLIED AS A MOISTURISER TO THE AFFECTED ...
     Route: 065

REACTIONS (1)
  - Joint swelling [Unknown]
